FAERS Safety Report 17922583 (Version 1)
Quarter: 2020Q2

REPORT INFORMATION
  Report Type: Spontaneous
  Country: US (occurrence: US)
  Receive Date: 20200621
  Receipt Date: 20200621
  Transmission Date: 20200714
  Serious: Yes (Other)
  Sender: FDA-Public Use
  Company Number: None

PATIENT
  Age: 67 Year
  Sex: Male
  Weight: 72 kg

DRUGS (17)
  1. NINJACOF [Suspect]
     Active Substance: CHLOPHEDIANOL\PYRILAMINE MALEATE
     Indication: SINUS DISORDER
     Dosage: ?          QUANTITY:2 TEASPOON(S);?
     Route: 048
     Dates: start: 20200619, end: 20200620
  2. BIOTIN [Concomitant]
     Active Substance: BIOTIN
  3. VITAMIN D3 [Concomitant]
     Active Substance: CHOLECALCIFEROL
  4. MILK THISTLE EXTRACT [Concomitant]
     Active Substance: DIETARY SUPPLEMENT\HERBALS\MILK THISTLE
  5. VITAMIN E [Concomitant]
     Active Substance: .ALPHA.-TOCOPHEROL
  6. GARLIC. [Concomitant]
     Active Substance: GARLIC
  7. SUNFLOWER LECITHIN [Concomitant]
  8. MULTI MINERAL TAB [Concomitant]
  9. SALMON OIL [Concomitant]
     Active Substance: FISH OIL
  10. VITAMIN C [Concomitant]
     Active Substance: ASCORBIC ACID
  11. BETA CARATIN [Concomitant]
  12. ZINC. [Concomitant]
     Active Substance: ZINC
  13. VITAMIN B COMPLEX [Concomitant]
     Active Substance: CYANOCOBALAMIN\DEXPANTHENOL\NIACINAMIDE\PYRIDOXINE HYDROCHLORIDE\RIBOFLAVIN 5^-PHOSPHATE SODIUM\THIAMINE HYDROCHLORIDE\VITAMIN B COMPLEX
  14. NINJACOF [Suspect]
     Active Substance: CHLOPHEDIANOL\PYRILAMINE MALEATE
     Indication: HYPERSENSITIVITY
     Dosage: ?          QUANTITY:2 TEASPOON(S);?
     Route: 048
     Dates: start: 20200619, end: 20200620
  15. LATANOPROST EYE DROP [Concomitant]
  16. MCG [Concomitant]
  17. L-ARGININE [Concomitant]
     Active Substance: ARGININE

REACTIONS (3)
  - Heart rate increased [None]
  - Heart rate irregular [None]
  - Palpitations [None]

NARRATIVE: CASE EVENT DATE: 20200621
